FAERS Safety Report 6133924-8 (Version None)
Quarter: 2009Q1

REPORT INFORMATION
  Report Type: 
  Country: None (occurrence: None)
  Receive Date: 20090326
  Receipt Date: 20090317
  Transmission Date: 20090719
  Serious: Yes (Hospitalization)
  Sender: FDA-Public Use
  Company Number: US-ELI_LILLY_AND_COMPANY-US200903005050

PATIENT
  Age: 17 Year
  Sex: Male

DRUGS (1)
  1. STRATTERA [Suspect]
     Indication: ATTENTION DEFICIT/HYPERACTIVITY DISORDER
     Dosage: 60 MG, UNKNOWN
     Route: 065
     Dates: start: 20080301, end: 20081201

REACTIONS (4)
  - BIPOLAR DISORDER [None]
  - EJACULATION DISORDER [None]
  - ERECTILE DYSFUNCTION [None]
  - HOSPITALISATION [None]
